FAERS Safety Report 9241419 (Version 2)
Quarter: 2013Q4

REPORT INFORMATION
  Report Type: Report from Study
  Country: US (occurrence: US)
  Receive Date: 20130419
  Receipt Date: 20131111
  Transmission Date: 20140711
  Serious: Yes (Hospitalization)
  Sender: FDA-Public Use
  Company Number: US-PFIZER INC-2012193770

PATIENT
  Age: 50 Year
  Sex: Female
  Weight: 72.6 kg

DRUGS (9)
  1. TOFACITINIB CITRATE [Suspect]
     Indication: RHEUMATOID ARTHRITIS
     Dosage: 2X/DAY
     Route: 048
     Dates: start: 20110119, end: 20120713
  2. METHOTREXATE [Concomitant]
     Indication: RHEUMATOID ARTHRITIS
  3. FOLIC ACID [Concomitant]
     Indication: RHEUMATOID ARTHRITIS
  4. PREDNISONE [Concomitant]
     Indication: RHEUMATOID ARTHRITIS
  5. NAPROSYN [Concomitant]
     Indication: RHEUMATOID ARTHRITIS
  6. CALCIUM + VIT D [Concomitant]
     Indication: SUPPLEMENTATION THERAPY
  7. FIBERCON [Concomitant]
     Indication: LAXATIVE SUPPORTIVE CARE
  8. NEBIVOLOL [Concomitant]
     Indication: HYPERTENSION
  9. SILVADENE [Concomitant]
     Indication: THERMAL BURN

REACTIONS (1)
  - Ovarian cancer metastatic [Recovered/Resolved with Sequelae]
